FAERS Safety Report 5204311-1 (Version None)
Quarter: 2007Q1

REPORT INFORMATION
  Report Type: 
  Country: None (occurrence: None)
  Receive Date: 20070110
  Receipt Date: 20060207
  Transmission Date: 20070707
  Serious: No
  Sender: FDA-Public Use
  Company Number: US-BRISTOL-MYERS SQUIBB COMPANY-13276696

PATIENT
  Sex: Male
  Weight: 57 kg

DRUGS (2)
  1. ABILIFY [Suspect]
     Indication: AFFECTIVE DISORDER
     Dates: start: 20051018, end: 20060101
  2. LEXAPRO [Concomitant]

REACTIONS (1)
  - WEIGHT INCREASED [None]
